FAERS Safety Report 5782464-4 (Version None)
Quarter: 2008Q2

REPORT INFORMATION
  Report Type: 
  Country: None (occurrence: None)
  Receive Date: 20080623
  Receipt Date: 20080618
  Transmission Date: 20081010
  Serious: Yes (Death, Life-Threatening, Hospitalization)
  Sender: FDA-Public Use
  Company Number: PHHY2008JP06086

PATIENT
  Sex: Male
  Weight: 65 kg

DRUGS (8)
  1. DIOVAN [Suspect]
     Indication: HYPERTENSION
     Dosage: 80 MG ONCE DAILY
     Route: 048
     Dates: end: 20080417
  2. PLAVIX [Suspect]
     Indication: CEREBRAL INFARCTION
     Dosage: 50 MG DAILY
     Route: 048
     Dates: end: 20080417
  3. MERISLON [Concomitant]
     Indication: DIZZINESS
     Dosage: 36 MG, UNK
     Route: 048
     Dates: end: 20070419
  4. URIEF [Concomitant]
     Indication: BENIGN PROSTATIC HYPERPLASIA
     Dosage: 4 MG, UNK
     Route: 048
     Dates: end: 20070419
  5. EBRANTIL [Concomitant]
     Indication: BENIGN PROSTATIC HYPERPLASIA
     Dosage: 30 MG, UNK
     Route: 048
     Dates: end: 20070419
  6. KETAS [Concomitant]
     Indication: CEREBRAL INFARCTION
     Dosage: 10 MG, UNK
     Route: 048
     Dates: end: 20070419
  7. ENDOXAN [Concomitant]
  8. ELASPOL [Concomitant]
     Dates: start: 20080419

REACTIONS (21)
  - BLOOD ALBUMIN DECREASED [None]
  - BLOOD AMYLASE INCREASED [None]
  - BLOOD CHOLINESTERASE DECREASED [None]
  - BLOOD GLUCOSE INCREASED [None]
  - BLOOD LACTATE DEHYDROGENASE INCREASED [None]
  - BLOOD POTASSIUM INCREASED [None]
  - BLOOD UREA INCREASED [None]
  - BLOOD URIC ACID DECREASED [None]
  - C-REACTIVE PROTEIN INCREASED [None]
  - DYSPNOEA [None]
  - ENDOTRACHEAL INTUBATION [None]
  - EOSINOPHIL COUNT DECREASED [None]
  - HAEMATOCRIT DECREASED [None]
  - HAEMOGLOBIN DECREASED [None]
  - INTERSTITIAL LUNG DISEASE [None]
  - LYMPHOCYTE COUNT DECREASED [None]
  - MECHANICAL VENTILATION [None]
  - MONOCYTE COUNT DECREASED [None]
  - NEUTROPHIL COUNT INCREASED [None]
  - PROTEIN TOTAL DECREASED [None]
  - WHITE BLOOD CELL DISORDER [None]
